FAERS Safety Report 4955446-X (Version None)
Quarter: 2006Q1

REPORT INFORMATION
  Report Type: 
  Country: None (occurrence: None)
  Receive Date: 20060127
  Receipt Date: 20050711
  Transmission Date: 20060701
  Serious: Yes (Hospitalization)
  Sender: FDA-Public Use
  Company Number: 05-07-1206

PATIENT
  Age: 32 Year
  Sex: Male
  Weight: 107.0489 kg

DRUGS (2)
  1. CLOZAPINE [Suspect]
     Indication: SCHIZOAFFECTIVE DISORDER
     Dosage: 400-450MG QD, ORAL
     Route: 048
     Dates: start: 20000701
  2. GEODON [Concomitant]

REACTIONS (4)
  - ABNORMAL BEHAVIOUR [None]
  - DELUSION [None]
  - DRUG LEVEL INCREASED [None]
  - VISION BLURRED [None]
